FAERS Safety Report 8447792-2 (Version None)
Quarter: 2012Q2

REPORT INFORMATION
  Report Type: 
  Country: None (occurrence: None)
  Receive Date: 20120619
  Receipt Date: 20120606
  Transmission Date: 20120825
  Serious: Yes (Life-Threatening, Hospitalization)
  Sender: FDA-Public Use
  Company Number: GB-COVIDIEN/TYCO HEALTHCARE/MALLINCKRODT-T201202516

PATIENT
  Age: 15 Year
  Sex: Female

DRUGS (1)
  1. FENTANYL-100 [Suspect]
     Dosage: FIVE 100 MCG/HR PATCHES, SINGLE
     Route: 062

REACTIONS (3)
  - SUICIDE ATTEMPT [None]
  - OVERDOSE [None]
  - DRUG DIVERSION [None]
